FAERS Safety Report 4804847-9 (Version None)
Quarter: 2005Q4

REPORT INFORMATION
  Report Type: 
  Country: None (occurrence: None)
  Receive Date: 20051017
  Receipt Date: 20051003
  Transmission Date: 20060501
  Serious: Yes (Hospitalization, Other)
  Sender: FDA-Public Use
  Company Number: HQWYE938416AUG05

PATIENT
  Age: 54 Year
  Sex: Male
  Weight: 89.6 kg

DRUGS (19)
  1. RAPAMUNE [Suspect]
     Indication: PROPHYLAXIS AGAINST TRANSPLANT REJECTION
     Dosage: SEE IMAGE
     Route: 048
     Dates: start: 20050901, end: 20050101
  2. RAPAMUNE [Suspect]
     Indication: PROPHYLAXIS AGAINST TRANSPLANT REJECTION
     Dosage: SEE IMAGE
     Route: 048
     Dates: end: 20050101
  3. RAPAMUNE [Suspect]
     Indication: PROPHYLAXIS AGAINST TRANSPLANT REJECTION
     Dosage: SEE IMAGE
     Route: 048
     Dates: start: 20050101, end: 20050901
  4. ZETIA [Concomitant]
  5. LASIX [Concomitant]
  6. CARDIZEM [Concomitant]
  7. ALTACE [Concomitant]
  8. LANTUS [Concomitant]
  9. LABETALOL HCL [Concomitant]
  10. CELLCEPT [Concomitant]
  11. PREDNISONE [Concomitant]
  12. COLACE (DOCUSATE SODIUM) [Concomitant]
  13. HUMALOG [Concomitant]
  14. SEPTRA [Concomitant]
  15. PEPCID [Concomitant]
  16. ASPIRIN [Concomitant]
  17. SYNTHROID [Concomitant]
  18. ZOCOR [Concomitant]
  19. TOPROL-XL [Concomitant]

REACTIONS (2)
  - DRUG INEFFECTIVE [None]
  - KIDNEY TRANSPLANT REJECTION [None]
